FAERS Safety Report 20040660 (Version 1)
Quarter: 2021Q4

REPORT INFORMATION
  Report Type: Spontaneous
  Country: US (occurrence: None)
  Receive Date: 20211108
  Receipt Date: 20211108
  Transmission Date: 20220303
  Serious: Yes (Disabling)
  Sender: FDA-Public Use
  Company Number: None

PATIENT
  Sex: Female
  Weight: 54 kg

DRUGS (3)
  1. LEXAPRO [Suspect]
     Active Substance: ESCITALOPRAM OXALATE
     Indication: Anxiety
     Dates: start: 20080101, end: 20200101
  2. PROZAC [Suspect]
     Active Substance: FLUOXETINE HYDROCHLORIDE
  3. CLONAZEPAM [Suspect]
     Active Substance: CLONAZEPAM

REACTIONS (3)
  - Energy increased [None]
  - Euphoric mood [None]
  - Abnormal behaviour [None]
